FAERS Safety Report 6407364-8 (Version None)
Quarter: 2009Q4

REPORT INFORMATION
  Report Type: 
  Country: None (occurrence: None)
  Receive Date: 20091014
  Receipt Date: 20090929
  Transmission Date: 20100525
  Serious: Yes (Hospitalization, Other)
  Sender: FDA-Public Use
  Company Number: AUR-APL-2009-00763

PATIENT
  Age: 69 Year
  Sex: Female

DRUGS (9)
  1. CITALOPRAM [Suspect]
     Dosage: 20 MG
  2. RISPERIDONE [Suspect]
     Dosage: 0.5 MG
  3. DICLOFENAC SODIUM [Suspect]
     Dosage: 50 MG
  4. DOMPERIDONE [Suspect]
     Dosage: 10 MG
  5. FUROSEMIDE [Suspect]
     Dosage: 20 MG
  6. LOPERAMIDE [Suspect]
     Dosage: 2MG
  7. PROPRANOLOL [Suspect]
  8. CO-CODAMOL [Suspect]
  9. ZOPICLONE [Suspect]

REACTIONS (12)
  - CACHEXIA [None]
  - CARDIAC MURMUR [None]
  - CHOLELITHIASIS [None]
  - CLOSTRIDIUM DIFFICILE COLITIS [None]
  - DECREASED APPETITE [None]
  - DEHYDRATION [None]
  - DEPRESSION [None]
  - DUODENAL ULCER [None]
  - GASTROINTESTINAL DISORDER [None]
  - HAEMATEMESIS [None]
  - LARGE INTESTINAL ULCER [None]
  - TOBACCO USER [None]
